FAERS Safety Report 4664914-X (Version None)
Quarter: 2005Q2

REPORT INFORMATION
  Report Type: 
  Country: None (occurrence: None)
  Receive Date: 20050518
  Receipt Date: 20041209
  Transmission Date: 20051028
  Serious: Yes (Life-Threatening, Hospitalization)
  Sender: FDA-Public Use
  Company Number: PHBS2004JP16559

PATIENT
  Age: 63 Year
  Sex: Male
  Weight: 63 kg

DRUGS (6)
  1. GLEEVEC [Suspect]
     Indication: GASTROINTESTINAL STROMAL TUMOUR
     Dosage: 100 MG, QW
     Route: 048
  2. GLEEVEC [Suspect]
     Dosage: 400 MG/DAY
     Route: 048
     Dates: start: 20041023, end: 20041027
  3. GLEEVEC [Suspect]
     Dosage: 200 MG, BID
     Route: 048
     Dates: start: 20041109, end: 20041112
  4. GLEEVEC [Suspect]
     Dosage: 100 MG, QD
     Route: 048
     Dates: start: 20041122, end: 20041128
  5. GLEEVEC [Suspect]
     Dosage: 10-200 MG/DAY
     Route: 048
     Dates: start: 20050106, end: 20050418
  6. BLOOD COAGULATION FACTORS [Suspect]

REACTIONS (18)
  - ABDOMINAL DISTENSION [None]
  - ABDOMINAL PAIN [None]
  - ANAEMIA [None]
  - DEPRESSED LEVEL OF CONSCIOUSNESS [None]
  - DISSEMINATED INTRAVASCULAR COAGULATION [None]
  - DYSPNOEA [None]
  - HAEMORRHAGIC ASCITES [None]
  - HYPOTENSION [None]
  - NAUSEA [None]
  - PERITONEAL HAEMORRHAGE [None]
  - PYREXIA [None]
  - SHOCK HAEMORRHAGIC [None]
  - TACHYCARDIA [None]
  - TESTICULAR HAEMORRHAGE [None]
  - TESTICULAR SWELLING [None]
  - THROMBOCYTOPENIA [None]
  - TUMOUR HAEMORRHAGE [None]
  - VOMITING [None]
